FAERS Safety Report 17421391 (Version 9)
Quarter: 2020Q4

REPORT INFORMATION
  Report Type: Report from Study
  Country: IL (occurrence: IL)
  Receive Date: 20200214
  Receipt Date: 20201028
  Transmission Date: 20210113
  Serious: Yes (Life-Threatening, Hospitalization)
  Sender: FDA-Public Use
  Company Number: NVSC2020IL036990

PATIENT
  Age: 55 Year
  Sex: Male
  Weight: 101 kg

DRUGS (5)
  1. MAXITROL [Concomitant]
     Active Substance: DEXAMETHASONE\NEOMYCIN SULFATE\POLYMYXIN B SULFATE
     Indication: CONJUNCTIVITIS
     Dosage: UNK
     Route: 065
     Dates: start: 20200202, end: 20200207
  2. TRIBEMIN [Concomitant]
     Active Substance: CYANOCOBALAMIN\PYRIDOXINE HYDROCHLORIDE\THIAMINE
     Indication: SUPPLEMENTATION THERAPY
     Dosage: UNK
     Route: 065
     Dates: start: 20171201
  3. GLYXAMBI [Concomitant]
     Active Substance: EMPAGLIFLOZIN\LINAGLIPTIN
     Indication: TYPE 2 DIABETES MELLITUS
     Dosage: UNK
     Route: 065
     Dates: start: 20171201
  4. BROLUCIZUMAB. [Suspect]
     Active Substance: BROLUCIZUMAB
     Indication: DIABETIC RETINAL OEDEMA
     Dosage: 6 MG/0.05 ML
     Route: 031
     Dates: start: 20181223, end: 20200121
  5. GLUCOMINE [Concomitant]
     Indication: TYPE 2 DIABETES MELLITUS
     Dosage: UNK
     Route: 065
     Dates: start: 20160101

REACTIONS (1)
  - Cerebrovascular accident [Recovered/Resolved]

NARRATIVE: CASE EVENT DATE: 20200209
